FAERS Safety Report 11925218 (Version 1)
Quarter: 2016Q1

REPORT INFORMATION
  Report Type: Spontaneous
  Country: JP (occurrence: JP)
  Receive Date: 20160118
  Receipt Date: 20160118
  Transmission Date: 20160526
  Serious: Yes (Other)
  Sender: FDA-Public Use
  Company Number: JP-MYLANLABS-2016M1002109

PATIENT

DRUGS (1)
  1. EPIPEN [Suspect]
     Active Substance: EPINEPHRINE
     Indication: PRODUCT USED FOR UNKNOWN INDICATION
     Dosage: UNK

REACTIONS (6)
  - Accidental exposure to product [Unknown]
  - Expired product administered [Unknown]
  - Injection site pain [Recovering/Resolving]
  - Palpitations [Recovering/Resolving]
  - Injection site pallor [Recovering/Resolving]
  - Blood pressure increased [Recovered/Resolved]
